FAERS Safety Report 6554840-3 (Version None)
Quarter: 2010Q1

REPORT INFORMATION
  Report Type: 
  Country: None (occurrence: None)
  Receive Date: 20100125
  Receipt Date: 20100113
  Transmission Date: 20100710
  Serious: Yes (Hospitalization)
  Sender: FDA-Public Use
  Company Number: 93738

PATIENT
  Age: 31 Year
  Sex: Male

DRUGS (2)
  1. BUPRENORPHINE HCL [Suspect]
  2. EMBOLIC STROKE TABLETS [Concomitant]

REACTIONS (5)
  - DRUG ABUSE [None]
  - EMBOLIC STROKE [None]
  - INCORRECT ROUTE OF DRUG ADMINISTRATION [None]
  - NEEDLE TRACK MARKS [None]
  - NUCLEAR MAGNETIC RESONANCE IMAGING BRAIN ABNORMAL [None]
